FAERS Safety Report 20448640 (Version 1)
Quarter: 2022Q1

REPORT INFORMATION
  Report Type: Spontaneous
  Country: CA (occurrence: CA)
  Receive Date: 20220209
  Receipt Date: 20220209
  Transmission Date: 20220423
  Serious: Yes (Other)
  Sender: FDA-Public Use
  Company Number: None

PATIENT
  Age: 45 Year
  Sex: Female

DRUGS (2)
  1. METHOTREXATE [Suspect]
     Active Substance: METHOTREXATE
     Indication: Cutaneous lupus erythematosus
     Dosage: 2 EVERY 1 DAYS
  2. FOLIC ACID [Concomitant]
     Active Substance: FOLIC ACID
     Dosage: EVERY 1 DAYS
     Route: 048

REACTIONS (11)
  - Acute cutaneous lupus erythematosus [Unknown]
  - Alopecia [Unknown]
  - Decreased appetite [Unknown]
  - Double stranded DNA antibody positive [Unknown]
  - Fatigue [Unknown]
  - Joint stiffness [Unknown]
  - Nausea [Unknown]
  - Photosensitivity reaction [Unknown]
  - Proteinuria [Unknown]
  - Condition aggravated [Unknown]
  - Off label use [Unknown]
